FAERS Safety Report 5306644-7 (Version None)
Quarter: 2007Q2

REPORT INFORMATION
  Report Type: 
  Country: None (occurrence: None)
  Receive Date: 20070424
  Receipt Date: 20070412
  Transmission Date: 20071010
  Serious: Yes (Other)
  Sender: FDA-Public Use
  Company Number: US-PFIZER INC-2007030014

PATIENT
  Sex: Female
  Weight: 65.8 kg

DRUGS (19)
  1. CHANTIX [Suspect]
     Indication: EX-SMOKER
     Route: 048
     Dates: start: 20070301, end: 20070322
  2. ATENOLOL [Concomitant]
  3. ZESTRIL [Concomitant]
  4. ZETIA [Concomitant]
  5. SIMVASTATIN [Concomitant]
  6. ACETYLSALICYLIC ACID SRT [Concomitant]
  7. ZYRTEC [Concomitant]
  8. ZOMIG [Concomitant]
  9. PRILOSEC [Concomitant]
  10. MEGACE [Concomitant]
  11. DITROPAN [Concomitant]
  12. CYMBALTA [Concomitant]
  13. LAMICTAL [Concomitant]
  14. ATIVAN [Concomitant]
  15. LYRICA [Concomitant]
  16. FLEXERIL [Concomitant]
  17. PERCOCET [Concomitant]
  18. NAPROSYN [Concomitant]
  19. ZANTAC [Concomitant]

REACTIONS (3)
  - DYSPNOEA [None]
  - SWOLLEN TONGUE [None]
  - THROAT TIGHTNESS [None]
